FAERS Safety Report 4840382-X (Version None)
Quarter: 2005Q4

REPORT INFORMATION
  Report Type: 
  Country: None (occurrence: None)
  Receive Date: 20051031
  Receipt Date: 20041206
  Transmission Date: 20060501
  Serious: Yes (Other)
  Sender: FDA-Public Use
  Company Number: PHEH2004US12947

PATIENT
  Age: 76 Year
  Sex: Female
  Weight: 132 kg

DRUGS (4)
  1. LESCOL XL [Suspect]
     Indication: HYPERLIPIDAEMIA
     Dosage: 80 MG, QD
     Dates: start: 20040809, end: 20041013
  2. ATENOLOL TABLETS USP (NGX) (ATENOLOL) [Concomitant]
  3. ENALAPRIL MALEATE TABLETS USP (NGX) (ENALAPRIL MALEATE) [Concomitant]
  4. HYDROCHLOROTHIAZIDE TABLETS USP (NGX) (HYDROCHLOROTHIAZIDE) TABLET [Concomitant]

REACTIONS (5)
  - ALANINE AMINOTRANSFERASE INCREASED [None]
  - ASPARTATE AMINOTRANSFERASE INCREASED [None]
  - BLOOD ALKALINE PHOSPHATASE INCREASED [None]
  - BLOOD BILIRUBIN INCREASED [None]
  - URTICARIA [None]
